FAERS Safety Report 5482669-6 (Version None)
Quarter: 2007Q4

REPORT INFORMATION
  Report Type: 
  Country: None (occurrence: None)
  Receive Date: 20071011
  Receipt Date: 20071001
  Transmission Date: 20080405
  Serious: Yes (Disabling, Other)
  Sender: FDA-Public Use
  Company Number: US-ELI_LILLY_AND_COMPANY-US200707003368

PATIENT
  Sex: Female
  Weight: 60.317 kg

DRUGS (7)
  1. GEMZAR [Suspect]
     Indication: BREAST CANCER STAGE III
     Dosage: 1000 MG/M2, UNK
     Route: 042
     Dates: start: 20070118, end: 20070517
  2. CARBOPLATIN [Concomitant]
     Indication: BREAST CANCER STAGE III
     Dates: start: 20070101
  3. FEMARA [Concomitant]
     Indication: BREAST CANCER
     Dosage: 2.5 MG, DAILY (1/D)
     Route: 048
  4. TYLENOL                                 /SCH/ [Concomitant]
  5. CALCIUM [Concomitant]
  6. VITAMIN B-12 [Concomitant]
  7. FISH OIL [Concomitant]

REACTIONS (3)
  - BLINDNESS [None]
  - OPTIC NEURITIS [None]
  - RECALL PHENOMENON [None]
